FAERS Safety Report 10056958 (Version 1)
Quarter: 2014Q2

REPORT INFORMATION
  Report Type: Spontaneous
  Country: US (occurrence: US)
  Receive Date: 20140403
  Receipt Date: 20140403
  Transmission Date: 20141212
  Serious: Yes (Hospitalization)
  Sender: FDA-Public Use
  Company Number: US-BANPHARM-20142505

PATIENT
  Age: 43 Year
  Sex: Male

DRUGS (4)
  1. IBUPROFEN UNKNOWN PRODUCT [Suspect]
     Dosage: 400 MG, Q8H, PRN,
  2. LISINOPRIL [Concomitant]
  3. CLONIDINE [Concomitant]
  4. SIMVASTATIN [Concomitant]

REACTIONS (1)
  - Hepatic failure [Recovering/Resolving]
